FAERS Safety Report 8597237-7 (Version None)
Quarter: 2012Q3

REPORT INFORMATION
  Report Type: 
  Country: None (occurrence: None)
  Receive Date: 20120816
  Receipt Date: 20120808
  Transmission Date: 20120928
  Serious: No
  Sender: FDA-Public Use
  Company Number: US-BIOGENIDEC-2012BI028242

PATIENT
  Age: 51 Year
  Sex: Female

DRUGS (1)
  1. INTERFERON BETA-1A [Suspect]
     Indication: MULTIPLE SCLEROSIS
     Route: 030
     Dates: start: 20010529

REACTIONS (9)
  - METABOLIC DISORDER [None]
  - LIMB OPERATION [None]
  - DERMATITIS [None]
  - UPPER LIMB FRACTURE [None]
  - GAIT DISTURBANCE [None]
  - BLISTER [None]
  - WEIGHT DECREASED [None]
  - FALL [None]
  - MENTAL IMPAIRMENT [None]
